FAERS Safety Report 9705309 (Version 1)
Quarter: 2013Q4

REPORT INFORMATION
  Report Type: Spontaneous
  Country: SE (occurrence: SE)
  Receive Date: 20131122
  Receipt Date: 20131122
  Transmission Date: 20140711
  Serious: Yes (Other)
  Sender: FDA-Public Use
  Company Number: SE-B.I. PHARMACEUTICALS,INC./RIDGEFIELD-2013-BI-37929SW

PATIENT
  Age: 90 Year
  Sex: Female

DRUGS (1)
  1. SPIRIVA [Suspect]
     Dates: start: 201305

REACTIONS (5)
  - Dyspnoea [Unknown]
  - Dizziness [Unknown]
  - Vomiting [Recovered/Resolved]
  - Dysphagia [Unknown]
  - Dysphagia [Unknown]
